FAERS Safety Report 10173035 (Version 1)
Quarter: 2014Q2

REPORT INFORMATION
  Report Type: Spontaneous
  Country: US (occurrence: None)
  Receive Date: 20140514
  Receipt Date: 20140514
  Transmission Date: 20141212
  Serious: Yes (Other)
  Sender: FDA-Public Use
  Company Number: None

PATIENT
  Age: 74 Year
  Sex: Female

DRUGS (1)
  1. NOVARTIS AFINITOR 10 MG [Suspect]
     Indication: RENAL CANCER
     Route: 048
     Dates: start: 20140326, end: 20140411

REACTIONS (1)
  - Rash [None]
